FAERS Safety Report 24234905 (Version 1)
Quarter: 2024Q3

REPORT INFORMATION
  Report Type: Report from Study
  Country: CR (occurrence: None)
  Receive Date: 20240821
  Receipt Date: 20240821
  Transmission Date: 20241017
  Serious: Yes (Other)
  Sender: ASTRAZENECA
  Company Number: 2024A149664

PATIENT
  Age: 765 Month
  Sex: Male

DRUGS (1)
  1. IMFINZI [Suspect]
     Active Substance: DURVALUMAB
     Indication: Cholangiocarcinoma
     Route: 042

REACTIONS (2)
  - Intra-abdominal fluid collection [Unknown]
  - Fluid retention [Unknown]

NARRATIVE: CASE EVENT DATE: 20240601
